FAERS Safety Report 8170226-2 (Version None)
Quarter: 2012Q1

REPORT INFORMATION
  Report Type: 
  Country: None (occurrence: None)
  Receive Date: 20120228
  Receipt Date: 20120214
  Transmission Date: 20120608
  Serious: Yes (Hospitalization, Other)
  Sender: FDA-Public Use
  Company Number: GB-PURDUE-USA_2009_0038163

PATIENT
  Age: 60 Year
  Sex: Male

DRUGS (2)
  1. LYRICA [Suspect]
     Indication: SCIATICA
     Dosage: 25 MG, SINGLE
     Route: 048
     Dates: start: 20080726, end: 20080726
  2. TRAMADOL HCL [Suspect]
     Indication: BACK PAIN
     Dosage: 50 MG, TID
     Route: 048

REACTIONS (8)
  - PAIN [None]
  - HYPERHIDROSIS [None]
  - CHEST DISCOMFORT [None]
  - SYNCOPE [None]
  - TREMOR [None]
  - TACHYCARDIA [None]
  - DIZZINESS [None]
  - MALAISE [None]
